FAERS Safety Report 10022036 (Version 2)
Quarter: 2014Q1

REPORT INFORMATION
  Report Type: Spontaneous
  Country: US (occurrence: US)
  Receive Date: 20140319
  Receipt Date: 20140319
  Transmission Date: 20141002
  Serious: Yes (Other)
  Sender: FDA-Public Use
  Company Number: US-UCBSA-111315

PATIENT
  Age: 8 Year
  Sex: Male
  Weight: 23.63 kg

DRUGS (2)
  1. METHYLPHENIDATE HYDROCHLORIDE [Suspect]
     Dosage: 36 MG
     Route: 048
     Dates: start: 20131113, end: 20131216
  2. RISPERIDONE [Concomitant]
     Route: 048
     Dates: start: 2010, end: 20140215

REACTIONS (2)
  - Affective disorder [Recovered/Resolved]
  - Aggression [Recovered/Resolved]
